FAERS Safety Report 18100950 (Version 2)
Quarter: 2020Q3

REPORT INFORMATION
  Report Type: Spontaneous
  Country: GB (occurrence: GB)
  Receive Date: 20200801
  Receipt Date: 20200813
  Transmission Date: 20201103
  Serious: Yes (Other)
  Sender: FDA-Public Use
  Company Number: GB-AUROBINDO-AUR-APL-2020-037125

PATIENT
  Age: 28 Year
  Sex: Female
  Weight: 50.8 kg

DRUGS (1)
  1. SERTRALINE AUROBINDO [Suspect]
     Active Substance: SERTRALINE HYDROCHLORIDE
     Indication: DEPRESSION
     Dosage: 100 MILLIGRAM
     Route: 048

REACTIONS (3)
  - Paraesthesia [Unknown]
  - Withdrawal syndrome [Recovered/Resolved]
  - Product substitution issue [Unknown]
